FAERS Safety Report 12880548 (Version 2)
Quarter: 2020Q3

REPORT INFORMATION
  Report Type: Report from Study
  Country: US (occurrence: US)
  Receive Date: 20161025
  Receipt Date: 20161116
  Transmission Date: 20201105
  Serious: Yes (Hospitalization)
  Sender: FDA-Public Use
  Company Number: US-PFIZER INC-2016494013

PATIENT
  Age: 63 Year
  Sex: Female
  Weight: 50.3 kg

DRUGS (22)
  1. SOLU?MEDROL [Concomitant]
     Active Substance: METHYLPREDNISOLONE SODIUM SUCCINATE
  2. SODIUM CHLORIDE. [Concomitant]
     Active Substance: SODIUM CHLORIDE
  3. PANTOPRAZOLE [Concomitant]
     Active Substance: PANTOPRAZOLE
  4. METRONIDAZOLE. [Concomitant]
     Active Substance: METRONIDAZOLE
  5. TREMELIMUMAB. [Suspect]
     Active Substance: TREMELIMUMAB
     Indication: NON-SMALL CELL LUNG CANCER
     Dosage: 1 MG/KG, ONCE IN 4 WEEKS
     Route: 042
     Dates: start: 20160426
  6. MEDI4736 [Suspect]
     Active Substance: DURVALUMAB
     Indication: NON-SMALL CELL LUNG CANCER
     Dosage: 20 MG/KG, ONCE IN 4 WEEKS
     Route: 042
     Dates: start: 20160426
  7. CLINDAMYCIN HCL [Suspect]
     Active Substance: CLINDAMYCIN HYDROCHLORIDE
     Indication: SINUSITIS
     Dosage: UNK
     Route: 065
     Dates: start: 20160929
  8. ONDANSETRON [Concomitant]
     Active Substance: ONDANSETRON
  9. MORPHINE [Concomitant]
     Active Substance: MORPHINE
  10. POTASSIUM CHLORIDE. [Concomitant]
     Active Substance: POTASSIUM CHLORIDE
  11. COMPAZINE [Concomitant]
     Active Substance: PROCHLORPERAZINE MALEATE
  12. DEXTROSE. [Concomitant]
     Active Substance: DEXTROSE
  13. TARCEVA [Suspect]
     Active Substance: ERLOTINIB HYDROCHLORIDE
     Indication: BIOPSY
     Dosage: 1 TAB ONCE A DAY
     Route: 048
     Dates: start: 20160816
  14. FAMOTIDINE. [Concomitant]
     Active Substance: FAMOTIDINE
  15. FOSFOMYCIN [Concomitant]
     Active Substance: FOSFOMYCIN
  16. METOCLOPRAMIDE. [Concomitant]
     Active Substance: METOCLOPRAMIDE
  17. GUAIFENESIN. [Concomitant]
     Active Substance: GUAIFENESIN
  18. PREDNISONE. [Suspect]
     Active Substance: PREDNISONE
     Indication: SINUSITIS
     Dosage: UNK
     Route: 065
     Dates: start: 20160929
  19. TYLENOL [Concomitant]
     Active Substance: ACETAMINOPHEN
  20. LOVENOX [Concomitant]
     Active Substance: ENOXAPARIN SODIUM
  21. GLUCAGON. [Concomitant]
     Active Substance: GLUCAGON
  22. MAGNESIUM SULFATE. [Concomitant]
     Active Substance: MAGNESIUM SULFATE

REACTIONS (2)
  - Pancreatitis [Recovered/Resolved]
  - Colitis [Recovered/Resolved]

NARRATIVE: CASE EVENT DATE: 20161007
